FAERS Safety Report 7903411-2 (Version None)
Quarter: 2011Q4

REPORT INFORMATION
  Report Type: 
  Country: None (occurrence: None)
  Receive Date: 20111108
  Receipt Date: 20111108
  Transmission Date: 20120403
  Serious: Yes (Other)
  Sender: FDA-Public Use
  Company Number: None

PATIENT
  Age: 76 Year
  Sex: Male
  Weight: 102.0593 kg

DRUGS (1)
  1. PENICILLIN V POTASSIUM [Suspect]
     Indication: ENDODONTIC PROCEDURE
     Dosage: 500MG 2 TO START 1 QID BY MOUTH
     Route: 048
     Dates: start: 20110921, end: 20110926

REACTIONS (2)
  - TOOTHACHE [None]
  - DRUG INEFFECTIVE [None]
